FAERS Safety Report 14578575 (Version 3)
Quarter: 2018Q3

REPORT INFORMATION
  Report Type: Report from Study
  Country: DE (occurrence: DE)
  Receive Date: 20180227
  Receipt Date: 20180808
  Transmission Date: 20181010
  Serious: Yes (Hospitalization)
  Sender: FDA-Public Use
  Company Number: DE-TEVA-2018-DE-859839

PATIENT
  Age: 57 Year
  Sex: Female
  Weight: 48 kg

DRUGS (17)
  1. CARBOPLATIN. [Suspect]
     Active Substance: CARBOPLATIN
     Indication: NON-SMALL CELL LUNG CANCER
     Route: 041
  2. PREGABALIN. [Concomitant]
     Active Substance: PREGABALIN
     Dates: start: 20170920
  3. MOVICOL [Concomitant]
     Active Substance: POLYETHYLENE GLYCOL 3350\POTASSIUM CHLORIDE\SODIUM BICARBONATE\SODIUM CHLORIDE
     Indication: PROPHYLAXIS
     Dosage: 13.7 MILLIGRAM DAILY;
     Dates: start: 20171221
  4. KEVATRIL [Concomitant]
     Active Substance: GRANISETRON HYDROCHLORIDE
     Indication: PROPHYLAXIS
     Route: 048
     Dates: start: 20171221
  5. PANTOZOL [Concomitant]
     Active Substance: PANTOPRAZOLE SODIUM
     Indication: PROPHYLAXIS
     Dates: start: 20171207
  6. UNACID [Concomitant]
     Indication: PNEUMONIA
     Dosage: 9 MILLIGRAM DAILY;
     Dates: start: 20171221, end: 20171230
  7. MCP [Concomitant]
     Active Substance: METOCLOPRAMIDE HYDROCHLORIDE
     Indication: PROPHYLAXIS
     Route: 048
     Dates: start: 20171207
  8. RANITIC [Concomitant]
     Active Substance: RANITIDINE HYDROCHLORIDE
     Indication: PROPHYLAXIS
     Route: 041
     Dates: start: 20171214
  9. FENISTIL [Concomitant]
     Active Substance: DIMETHINDENE
     Indication: PROPHYLAXIS
     Route: 041
     Dates: start: 20171214
  10. KEVATRIL [Concomitant]
     Active Substance: GRANISETRON HYDROCHLORIDE
     Route: 041
     Dates: start: 20171214
  11. FENTANYL TTS [Concomitant]
     Active Substance: FENTANYL
     Indication: TUMOUR PAIN
     Route: 062
     Dates: start: 20170920
  12. ABRAXANE [Suspect]
     Active Substance: PACLITAXEL
     Indication: NON-SMALL CELL LUNG CANCER
     Route: 041
     Dates: end: 20171214
  13. DECORTIN [Concomitant]
     Active Substance: PREDNISONE
     Indication: PROPHYLAXIS
     Dates: start: 20171214
  14. ETORICOXIB. [Concomitant]
     Active Substance: ETORICOXIB
     Indication: TUMOUR PAIN
     Dosage: 60 MILLIGRAM DAILY;
     Route: 048
     Dates: start: 20171207
  15. PREGABALIN. [Concomitant]
     Active Substance: PREGABALIN
     Indication: TUMOUR PAIN
     Route: 048
     Dates: start: 20170920
  16. BEN U RON [Concomitant]
     Indication: TUMOUR PAIN
     Dosage: 1500 MILLIGRAM DAILY;
     Route: 048
     Dates: start: 20171207, end: 20171221
  17. AMITRIPTYLLIN [Concomitant]
     Active Substance: AMITRIPTYLINE HYDROCHLORIDE
     Indication: TUMOUR PAIN
     Dosage: 30 MILLIGRAM DAILY;
     Dates: start: 20170920, end: 20171221

REACTIONS (6)
  - Pneumonia [Recovered/Resolved]
  - Dizziness [Recovered/Resolved]
  - Nausea [Recovered/Resolved]
  - White blood cell count decreased [Recovered/Resolved]
  - Anaemia [Recovered/Resolved]
  - Platelet count decreased [Recovered/Resolved]

NARRATIVE: CASE EVENT DATE: 20171214
